FAERS Safety Report 5425544-5 (Version None)
Quarter: 2007Q3

REPORT INFORMATION
  Report Type: 
  Country: None (occurrence: None)
  Receive Date: 20070824
  Receipt Date: 20070814
  Transmission Date: 20080115
  Serious: Yes (Hospitalization, Other)
  Sender: FDA-Public Use
  Company Number: FR-PFIZER INC-2007049916

PATIENT
  Sex: Female
  Weight: 44.5 kg

DRUGS (1)
  1. LYRICA [Suspect]
     Indication: HEADACHE

REACTIONS (2)
  - CROHN'S DISEASE [None]
  - ENTEROCOLITIS HAEMORRHAGIC [None]
